FAERS Safety Report 13417073 (Version 2)
Quarter: 2017Q2

REPORT INFORMATION
  Report Type: Report from Study
  Country: US (occurrence: US)
  Receive Date: 20170407
  Receipt Date: 20170421
  Transmission Date: 20170830
  Serious: No
  Sender: FDA-Public Use
  Company Number: US-OTSUKA-2017_007536

PATIENT
  Age: 40 Year
  Sex: Female
  Weight: 69 kg

DRUGS (31)
  1. BLINDED TOLVAPTAN [Suspect]
     Active Substance: TOLVAPTAN
     Dosage: 45 MG, QD (IN MORNING), TOLVAPTAN TITRATION
     Route: 048
     Dates: start: 20150726, end: 20150729
  2. BLINDED TOLVAPTAN [Suspect]
     Active Substance: TOLVAPTAN
     Dosage: 90 MG, QD (3 IN MORNING), TOLVATAN RUN-IN
     Route: 048
     Dates: start: 20150805, end: 20150825
  3. BLINDED TOLVAPTAN [Suspect]
     Active Substance: TOLVAPTAN
     Indication: CONGENITAL CYSTIC KIDNEY DISEASE
     Dosage: 90 MG, QD (3 IN MORNING)/PLACEBO
     Route: 048
     Dates: start: 20150826
  4. BLINDED *PLACEBO [Suspect]
     Active Substance: INVESTIGATIONAL PRODUCT
     Dosage: PLACEBO (IN MORNING)
     Route: 048
     Dates: start: 20150715, end: 20150721
  5. BLINDED TOLVAPTAN [Suspect]
     Active Substance: TOLVAPTAN
     Dosage: PLACEBO (IN MORNING)
     Route: 048
     Dates: start: 20150715, end: 20150721
  6. BLINDED TOLVAPTAN [Suspect]
     Active Substance: TOLVAPTAN
     Dosage: 15 MG, QD (IN EVENING), TOLVAPTAN TITRATION
     Route: 048
     Dates: start: 20150726, end: 20150729
  7. BLINDED *PLACEBO [Suspect]
     Active Substance: INVESTIGATIONAL PRODUCT
     Dosage: 60 MG, QD (2 IN MORNING), TOLVAPTAN TITRATION
     Route: 048
     Dates: start: 20150730, end: 20150802
  8. BLINDED *PLACEBO [Suspect]
     Active Substance: INVESTIGATIONAL PRODUCT
     Dosage: 30 MG, QD (1 IN EVENING), TOLVAPTAN TITRATION
     Route: 048
     Dates: start: 20150730, end: 20150802
  9. BLINDED TOLVAPTAN [Suspect]
     Active Substance: TOLVAPTAN
     Dosage: PLACEBO (IN EVENING)
     Route: 048
     Dates: start: 20150715, end: 20150721
  10. BLINDED *PLACEBO [Suspect]
     Active Substance: INVESTIGATIONAL PRODUCT
     Dosage: 15 MG, QD (IN EVENING), TOLVAPTAN TITRATION
     Route: 048
     Dates: start: 20150726, end: 20150729
  11. BLINDED TOLVAPTAN [Suspect]
     Active Substance: TOLVAPTAN
     Dosage: 60 MG, QD (2 IN MORNING), TOLVAPTAN TITRATION
     Route: 048
     Dates: start: 20150730, end: 20150802
  12. BLINDED *PLACEBO [Suspect]
     Active Substance: INVESTIGATIONAL PRODUCT
     Dosage: 30 MG, QD (1 IN EVENING), TOLVATAN RUN-IN
     Route: 048
     Dates: start: 20150805, end: 20150825
  13. CELEXA [Concomitant]
     Active Substance: CITALOPRAM HYDROBROMIDE
     Indication: ANXIETY
     Dosage: 18 MG, QD
     Route: 048
     Dates: start: 20151207
  14. BLINDED TOLVAPTAN [Suspect]
     Active Substance: TOLVAPTAN
     Dosage: 30 MG, QD (1 IN EVENING)/PLACEBO
     Route: 048
     Dates: start: 20150826
  15. BLINDED TOLVAPTAN [Suspect]
     Active Substance: TOLVAPTAN
     Dosage: 30 MG, QD (IN MORNING), TOLVAPTAN TITRATION
     Route: 048
     Dates: start: 20150722, end: 20150725
  16. BLINDED *PLACEBO [Suspect]
     Active Substance: INVESTIGATIONAL PRODUCT
     Dosage: 45 MG, QD (IN MORNING), TOLVAPTAN TITRATION
     Route: 048
     Dates: start: 20150726, end: 20150729
  17. BLINDED TOLVAPTAN [Suspect]
     Active Substance: TOLVAPTAN
     Dosage: 30 MG, QD (1 IN EVENING), TOLVAPTAN TITRATION
     Route: 048
     Dates: start: 20150803, end: 20150804
  18. LISINOPRIL. [Concomitant]
     Active Substance: LISINOPRIL
     Indication: HYPERTENSION
     Dosage: 10 MG, QD
     Route: 048
     Dates: start: 20150826
  19. BLINDED TOLVAPTAN [Suspect]
     Active Substance: TOLVAPTAN
     Dosage: 15 MG, QD (IN EVENING) TOLVAPTAN TITRATION
     Route: 048
     Dates: start: 20150722, end: 20150725
  20. BLINDED TOLVAPTAN [Suspect]
     Active Substance: TOLVAPTAN
     Dosage: 30 MG, QD (1 IN EVENING), TOLVAPTAN TITRATION
     Route: 048
     Dates: start: 20150730, end: 20150802
  21. BLINDED *PLACEBO [Suspect]
     Active Substance: INVESTIGATIONAL PRODUCT
     Dosage: 15 MG, QD (IN EVENING) TOLVAPTAN TITRATION
     Route: 048
     Dates: start: 20150722, end: 20150725
  22. BLINDED *PLACEBO [Suspect]
     Active Substance: INVESTIGATIONAL PRODUCT
     Dosage: 90 MG, QD (3 IN MORNING), TOLVAPTAN TITRATION
     Route: 048
     Dates: start: 20150803, end: 20150804
  23. BLINDED TOLVAPTAN [Suspect]
     Active Substance: TOLVAPTAN
     Dosage: 30 MG, QD (1 IN EVENING), TOLVATAN RUN-IN
     Route: 048
     Dates: start: 20150805, end: 20150825
  24. VITRON C [Concomitant]
     Active Substance: DIETARY SUPPLEMENT
     Indication: ANAEMIA
     Dosage: 1 DF (1 TAB), BID
     Route: 048
     Dates: start: 201501, end: 20160421
  25. BLINDED *PLACEBO [Suspect]
     Active Substance: INVESTIGATIONAL PRODUCT
     Indication: CONGENITAL CYSTIC KIDNEY DISEASE
     Dosage: 90 MG, QD (3 IN MORNING)/PLACEBO
     Route: 048
     Dates: start: 20150826
  26. BLINDED *PLACEBO [Suspect]
     Active Substance: INVESTIGATIONAL PRODUCT
     Dosage: PLACEBO (IN EVENING)
     Route: 048
     Dates: start: 20150715, end: 20150721
  27. BLINDED TOLVAPTAN [Suspect]
     Active Substance: TOLVAPTAN
     Dosage: 90 MG, QD (3 IN MORNING), TOLVAPTAN TITRATION
     Route: 048
     Dates: start: 20150803, end: 20150804
  28. BLINDED *PLACEBO [Suspect]
     Active Substance: INVESTIGATIONAL PRODUCT
     Dosage: 30 MG, QD (1 IN EVENING), TOLVAPTAN TITRATION
     Route: 048
     Dates: start: 20150803, end: 20150804
  29. BLINDED *PLACEBO [Suspect]
     Active Substance: INVESTIGATIONAL PRODUCT
     Dosage: 90 MG, QD (3 IN MORNING), TOLVATAN RUN-IN
     Route: 048
     Dates: start: 20150805, end: 20150825
  30. BLINDED *PLACEBO [Suspect]
     Active Substance: INVESTIGATIONAL PRODUCT
     Dosage: 30 MG, QD (1 IN EVENING)/PLACEBO
     Route: 048
     Dates: start: 20150826
  31. BLINDED *PLACEBO [Suspect]
     Active Substance: INVESTIGATIONAL PRODUCT
     Dosage: 30 MG, QD (IN MORNING), TOLVAPTAN TITRATION
     Route: 048
     Dates: start: 20150722, end: 20150725

REACTIONS (2)
  - Aspartate aminotransferase increased [Recovered/Resolved]
  - Alanine aminotransferase increased [Recovered/Resolved]

NARRATIVE: CASE EVENT DATE: 20160322
